FAERS Safety Report 4873041-8 (Version None)
Quarter: 2005Q4

REPORT INFORMATION
  Report Type: 
  Country: None (occurrence: None)
  Receive Date: 20051201
  Receipt Date: 20050815
  Transmission Date: 20060501
  Serious: No
  Sender: FDA-Public Use
  Company Number: 2005PV001226

PATIENT
  Age: 64 Year
  Sex: Female
  Weight: 104.3273 kg

DRUGS (15)
  1. BYETTA [Suspect]
     Indication: DIABETES MELLITUS NON-INSULIN-DEPENDENT
     Dosage: 5 MCG; BID; SC
     Route: 058
     Dates: start: 20050728
  2. GLIPIZIDE [Concomitant]
  3. AVANDAMET [Concomitant]
  4. PROTONIX [Concomitant]
  5. OLMESARTAN MEDOXOMIL [Concomitant]
  6. ZOCOR [Concomitant]
  7. NAPROXEN [Concomitant]
  8. ALPRAZOLAM [Concomitant]
  9. ALLEGRA [Concomitant]
  10. SYNTHROID [Concomitant]
  11. VITAMIN E [Concomitant]
  12. B-6 [Concomitant]
  13. B 12 [Concomitant]
  14. CALCIUM +D [Concomitant]
  15. ASPIRIN [Concomitant]

REACTIONS (3)
  - HYPOTONIA [None]
  - NAUSEA [None]
  - WEIGHT DECREASED [None]
